FAERS Safety Report 13945065 (Version 1)
Quarter: 2017Q3

REPORT INFORMATION
  Report Type: Spontaneous
  Country: US (occurrence: US)
  Receive Date: 20170907
  Receipt Date: 20170907
  Transmission Date: 20171128
  Serious: Yes (Other)
  Sender: FDA-Public Use
  Company Number: US-CONCORDIA PHARMACEUTICALS INC.-GSH201709-005096

PATIENT
  Age: 41 Year
  Sex: Female
  Weight: 117.9 kg

DRUGS (16)
  1. OMEPRAZOLE. [Concomitant]
     Active Substance: OMEPRAZOLE
  2. GABAPENTIN. [Concomitant]
     Active Substance: GABAPENTIN
  3. PLAQUENIL [Suspect]
     Active Substance: HYDROXYCHLOROQUINE SULFATE
     Indication: RHEUMATOID ARTHRITIS
     Dosage: ONE TABLET BY MOUTH TWICE A DAY
     Dates: start: 201308
  4. ORENCIA [Suspect]
     Active Substance: ABATACEPT
     Indication: RHEUMATOID ARTHRITIS
     Route: 058
     Dates: start: 201507, end: 20160919
  5. ENBREL [Suspect]
     Active Substance: ETANERCEPT
     Route: 042
     Dates: start: 20160919, end: 201701
  6. XELJANZ XR [Suspect]
     Active Substance: TOFACITINIB CITRATE
     Indication: PRODUCT USED FOR UNKNOWN INDICATION
     Route: 048
     Dates: start: 20170310
  7. PREDNISONE. [Suspect]
     Active Substance: PREDNISONE
     Indication: PRODUCT USED FOR UNKNOWN INDICATION
     Route: 065
  8. AMBIEN CR [Concomitant]
     Active Substance: ZOLPIDEM TARTRATE
  9. METHOTREXATE SODIUM. [Concomitant]
     Active Substance: METHOTREXATE SODIUM
     Dates: start: 201403
  10. ENBREL [Suspect]
     Active Substance: ETANERCEPT
     Indication: PRODUCT USED FOR UNKNOWN INDICATION
     Dates: start: 201501, end: 201507
  11. MTX [Concomitant]
     Active Substance: METHOTREXATE SODIUM
  12. OMEGA 3 [Concomitant]
     Active Substance: OMEGA-3 FATTY ACIDS
  13. FOLIC ACID. [Concomitant]
     Active Substance: FOLIC ACID
  14. VITAMIN B12 [Concomitant]
     Active Substance: CYANOCOBALAMIN
  15. INSULIN [Concomitant]
     Active Substance: INSULIN NOS
  16. CALCIUM [Concomitant]
     Active Substance: CALCIUM

REACTIONS (15)
  - Rheumatoid arthritis [Not Recovered/Not Resolved]
  - Drug effect decreased [Unknown]
  - Central pain syndrome [Unknown]
  - Headache [Recovered/Resolved]
  - Porokeratosis [Unknown]
  - Polyarthritis [Unknown]
  - Musculoskeletal stiffness [Unknown]
  - Pain in extremity [Unknown]
  - Oral pain [Recovered/Resolved]
  - Vomiting [Recovered/Resolved]
  - Muscle swelling [Unknown]
  - Nausea [Recovered/Resolved]
  - Back pain [Unknown]
  - Synovitis [Unknown]
  - Anaemia [Unknown]

NARRATIVE: CASE EVENT DATE: 2013
